FAERS Safety Report 8561963-6 (Version None)
Quarter: 2012Q3

REPORT INFORMATION
  Report Type: 
  Country: None (occurrence: None)
  Receive Date: 20120802
  Receipt Date: 20120716
  Transmission Date: 20120928
  Serious: No
  Sender: FDA-Public Use
  Company Number: PHHY2011US37474

PATIENT
  Sex: Female
  Weight: 65.76 kg

DRUGS (5)
  1. OXYCONTIN [Concomitant]
  2. TASIGNA [Suspect]
     Indication: NEOPLASM MALIGNANT
     Dosage: 400 MG, BID
     Route: 048
     Dates: start: 20110331, end: 20120723
  3. LASIX [Concomitant]
  4. ALBUTEROL [Concomitant]
  5. NEURONTIN [Concomitant]

REACTIONS (2)
  - HYPERHIDROSIS [None]
  - LABELLED DRUG-FOOD INTERACTION MEDICATION ERROR [None]
